FAERS Safety Report 9375656 (Version 1)
Quarter: 2013Q2

REPORT INFORMATION
  Report Type: Spontaneous
  Country: SE (occurrence: SE)
  Receive Date: 20130628
  Receipt Date: 20130628
  Transmission Date: 20140414
  Serious: Yes (Hospitalization)
  Sender: FDA-Public Use
  Company Number: CHPA2013SE007371

PATIENT
  Age: 24 Year
  Sex: Female

DRUGS (4)
  1. SCOPODERM TTS [Suspect]
     Indication: NAUSEA
     Dosage: UNK, UNK
     Route: 062
     Dates: start: 20130107
  2. SCOPODERM TTS [Suspect]
     Indication: VOMITING
  3. SCOPODERM TTS [Suspect]
     Indication: BALANCE DISORDER
  4. SCOPODERM TTS [Suspect]
     Indication: DIZZINESS

REACTIONS (8)
  - Toxicity to various agents [Unknown]
  - Nausea [Unknown]
  - Decreased appetite [Unknown]
  - Vomiting [Unknown]
  - Dry mouth [Unknown]
  - Application site irritation [Unknown]
  - Urinary retention [Unknown]
  - Off label use [Unknown]
